FAERS Safety Report 14614031 (Version 2)
Quarter: 2018Q1

REPORT INFORMATION
  Report Type: Spontaneous
  Country: DE (occurrence: DE)
  Receive Date: 20180308
  Receipt Date: 20180322
  Transmission Date: 20180509
  Serious: Yes (Other)
  Sender: FDA-Public Use
  Company Number: DE-TEVA-2018-DE-864584

PATIENT
  Sex: Male

DRUGS (12)
  1. TAMSULISON 0.4 [Concomitant]
     Dosage: 1-0-0
  2. OMEP 20 [Concomitant]
     Dosage: 1-0-0
  3. AMINEURIN [Concomitant]
     Active Substance: AMITRIPTYLINE HYDROCHLORIDE
     Dosage: 50 - 0 - 100
  4. MIRTAZAPIN 15 [Concomitant]
     Active Substance: MIRTAZAPINE
     Dosage: 0-0-1
  5. IBU 600 [Concomitant]
     Dosage: 2X1
  6. DIAZEPAM. [Suspect]
     Active Substance: DIAZEPAM
     Route: 065
  7. L-POLAFLUX [Concomitant]
     Active Substance: LEVOMETHADONE HYDROCHLORIDE
     Dates: start: 2007
  8. ULTIBRO (INHALATION) [Concomitant]
     Dosage: 1-0-0
  9. BEROTEC SPRAY [Concomitant]
     Dosage: 2X1
  10. NASENSPRAY RATIOPHARM [Concomitant]
  11. SYMBIOCORT 160/4,5 [Concomitant]
     Dosage: 1-0-1
  12. L-POLAFLUX [Concomitant]
     Active Substance: LEVOMETHADONE HYDROCHLORIDE
     Dates: start: 201712

REACTIONS (2)
  - Drug abuse [Unknown]
  - Medication residue present [Unknown]
